FAERS Safety Report 21336403 (Version 1)
Quarter: 2022Q3

REPORT INFORMATION
  Report Type: Spontaneous
  Country: DE (occurrence: DE)
  Receive Date: 20220915
  Receipt Date: 20220915
  Transmission Date: 20221026
  Serious: Yes (Hospitalization, Other)
  Sender: FDA-Public Use
  Company Number: None

PATIENT
  Age: 48 Year
  Sex: Female
  Weight: 73 kg

DRUGS (4)
  1. PREGABALIN [Suspect]
     Active Substance: PREGABALIN
     Indication: Feeling hot
     Dosage: 10 TAKE 50 MG, UNIT DOSE : 50 MG, FREQUENCY TIME : 1 DAY, DURATION : 10 DAYS, THERAPY END DATE : NAS
     Dates: start: 20220810
  2. PREGABALIN [Suspect]
     Active Substance: PREGABALIN
     Indication: Polyneuropathy
     Dosage: 2 TAKE 100 MG,  THERAPY START DATE : NASK, FREQUENCY TIME : 1 DAY, DURATION : 2 DAYS, UNIT DOSE : 10
     Dates: end: 20220821
  3. PREGABALIN [Suspect]
     Active Substance: PREGABALIN
     Indication: Feeling hot
  4. AMLODIPINE BESYLATE [Concomitant]
     Active Substance: AMLODIPINE BESYLATE
     Indication: Hypertension
     Dosage: UNIT DOSE: 5 MG, STRENGTH: 5 MG

REACTIONS (9)
  - Hypertensive crisis [Recovered/Resolved]
  - Nausea [Recovered/Resolved]
  - Somnolence [Recovered/Resolved]
  - Paraesthesia [Recovering/Resolving]
  - Restlessness [Recovering/Resolving]
  - Feeling abnormal [Recovering/Resolving]
  - Fatigue [Recovered/Resolved]
  - Headache [Recovering/Resolving]
  - Anxiety [Recovering/Resolving]

NARRATIVE: CASE EVENT DATE: 20220820
